FAERS Safety Report 9589308 (Version 1)
Quarter: 2013Q4

REPORT INFORMATION
  Report Type: Spontaneous
  Country: US (occurrence: US)
  Receive Date: 20131003
  Receipt Date: 20131003
  Transmission Date: 20140711
  Serious: No
  Sender: FDA-Public Use
  Company Number: US-AMGEN-USASP2012069585

PATIENT
  Age: 23 Year
  Sex: Female
  Weight: 68.03 kg

DRUGS (3)
  1. ENBREL [Suspect]
     Indication: RHEUMATOID ARTHRITIS
     Dosage: 50 MG, QWK
     Route: 058
  2. VYVANSE [Concomitant]
     Dosage: 20 MG, UNK
  3. MORTIN [Concomitant]
     Dosage: 400 MG, UNK

REACTIONS (4)
  - Cough [Unknown]
  - Oropharyngeal pain [Unknown]
  - Drug ineffective [Unknown]
  - Nasopharyngitis [Unknown]
